FAERS Safety Report 6737845-9 (Version None)
Quarter: 2010Q2

REPORT INFORMATION
  Report Type: 
  Country: None (occurrence: None)
  Receive Date: 20100524
  Receipt Date: 20100517
  Transmission Date: 20101027
  Serious: Yes (Other)
  Sender: FDA-Public Use
  Company Number: US-GENZYME-CERZ-1001214

PATIENT

DRUGS (5)
  1. CEREZYME [Suspect]
     Indication: GAUCHER'S DISEASE
     Dosage: 2800 U, Q2W
     Route: 042
  2. CEREZYME [Suspect]
     Dosage: 3000 U, Q2W
     Route: 042
  3. DIGOXIN [Concomitant]
     Indication: ATRIAL FIBRILLATION
     Dosage: 0.25 MG, UNK
  4. WARFARIN SODIUM [Concomitant]
     Indication: ATRIAL FIBRILLATION
     Dosage: 2 MG, UNK
  5. WARFARIN SODIUM [Concomitant]
     Dosage: 1 MG, UNK

REACTIONS (3)
  - EYE DISORDER [None]
  - INTERVERTEBRAL DISC PROTRUSION [None]
  - PERIARTHRITIS [None]
